FAERS Safety Report 4721568-1 (Version None)
Quarter: 2005Q3

REPORT INFORMATION
  Report Type: 
  Country: None (occurrence: None)
  Receive Date: 20050721
  Receipt Date: 20041202
  Transmission Date: 20060218
  Serious: No
  Sender: FDA-Public Use
  Company Number: US-BRISTOL-MYERS SQUIBB COMPANY-12782652

PATIENT
  Age: 77 Year
  Sex: Female
  Weight: 68 kg

DRUGS (3)
  1. COUMADIN [Suspect]
     Indication: CEREBROVASCULAR ACCIDENT
     Dosage: VARIED OVER YEARS; FOR FEW YEARS: 1.25MG X 4D + 2.5MG ON 5THDAY; 11/29=1.25 MG, TEMP STOPPED FOR 2 D
     Route: 048
  2. COUMADIN [Suspect]
     Indication: MYOCARDIAL INFARCTION
     Dosage: VARIED OVER YEARS; FOR FEW YEARS: 1.25MG X 4D + 2.5MG ON 5THDAY; 11/29=1.25 MG, TEMP STOPPED FOR 2 D
     Route: 048
  3. OTHERS (NOS) [Concomitant]

REACTIONS (2)
  - INTERNATIONAL NORMALISED RATIO INCREASED [None]
  - PROTHROMBIN TIME PROLONGED [None]
